FAERS Safety Report 6032622-9 (Version None)
Quarter: 2009Q1

REPORT INFORMATION
  Report Type: 
  Country: None (occurrence: None)
  Receive Date: 20090109
  Receipt Date: 20081229
  Transmission Date: 20090719
  Serious: Yes (Other)
  Sender: FDA-Public Use
  Company Number: PHHY2008DE30492

PATIENT
  Sex: Male

DRUGS (14)
  1. RASILEZ [Suspect]
     Indication: HYPERTENSION
     Dosage: 150 MG/D
     Dates: start: 20081125, end: 20081126
  2. NOVO-HELISEN [Suspect]
     Dosage: UNK
     Dates: start: 20071101
  3. NEBILET [Concomitant]
     Indication: HYPERTENSION
     Dosage: 5 MG/DAY
     Route: 048
  4. NEBILET [Concomitant]
     Indication: CORONARY ARTERY DISEASE
  5. CANDESARTAN [Concomitant]
     Dosage: UNK
  6. DILTIAZEM [Concomitant]
     Indication: HYPERTENSION
     Dosage: 240 MG/DAY
     Route: 048
  7. DILTIAZEM [Concomitant]
     Indication: CORONARY ARTERY DISEASE
  8. GODAMED [Concomitant]
     Indication: THROMBOSIS PROPHYLAXIS
     Dosage: 100 MG/DAY
     Route: 048
  9. VIANI [Concomitant]
     Indication: ASTHMA
     Dosage: 320
  10. ALLOPURINOL [Concomitant]
     Dosage: UNK
     Route: 048
  11. SIMVASTATIN [Concomitant]
     Indication: HYPERCHOLESTEROLAEMIA
     Dosage: 20 MG/DAY
     Route: 048
  12. ATACAND [Concomitant]
     Indication: HYPERTENSION
     Dosage: 16+8 MG/DAY
     Route: 048
  13. ATACAND [Concomitant]
     Indication: CORONARY ARTERY DISEASE
  14. SINGULAIR [Concomitant]
     Indication: ASTHMA
     Dosage: 10

REACTIONS (7)
  - ANGINA PECTORIS [None]
  - BLOOD PRESSURE INADEQUATELY CONTROLLED [None]
  - BLOOD PRESSURE SYSTOLIC INCREASED [None]
  - CHEST PAIN [None]
  - HEADACHE [None]
  - HOT FLUSH [None]
  - HYPERTENSIVE CRISIS [None]
